FAERS Safety Report 7647008-0 (Version None)
Quarter: 2011Q3

REPORT INFORMATION
  Report Type: 
  Country: None (occurrence: None)
  Receive Date: 20110801
  Receipt Date: 20110725
  Transmission Date: 20111222
  Serious: Yes (Other)
  Sender: FDA-Public Use
  Company Number: US-PFIZER INC-2011081878

PATIENT
  Sex: Male

DRUGS (16)
  1. NEURONTIN [Concomitant]
     Indication: NERVE INJURY
     Dosage: 100 MG, 3X/DAY
     Route: 048
     Dates: start: 20110323
  2. ACETYLSALICYLIC ACID [Concomitant]
     Dosage: 81 MG, 1X/DAY
     Route: 048
     Dates: start: 20091117
  3. MULTI-VITAMINS [Concomitant]
     Dosage: UNK
     Route: 048
  4. CIALIS [Suspect]
     Dosage: UNK
     Route: 048
     Dates: start: 20110411
  5. HYTRIN [Suspect]
     Dosage: 5 MG, 1X/DAY
     Route: 048
     Dates: start: 20110323
  6. VIAGRA [Suspect]
     Dosage: UNK
     Route: 048
     Dates: start: 20110411
  7. GLUCOPHAGE [Concomitant]
     Indication: DIABETES MELLITUS
     Dosage: 850 MG, 2X/DAY
     Route: 048
     Dates: start: 20110323
  8. NIACIN [Concomitant]
     Dosage: 500 MG, 1X/DAY
     Route: 048
     Dates: start: 20090818
  9. LOVAZA [Concomitant]
     Dosage: 2000 MG, 1X/DAY
     Route: 048
     Dates: start: 20090818
  10. VITAMIN D [Concomitant]
     Dosage: 1000 IU, UNK
     Route: 048
     Dates: start: 20091117
  11. LISINOPRIL [Concomitant]
     Dosage: 2.5 MG, 1X/DAY
     Route: 048
     Dates: start: 20110323
  12. LISINOPRIL [Concomitant]
     Dosage: 2.5 MG, 1X/DAY
  13. ALBUTEROL SULFATE AUTOHALER [Concomitant]
     Indication: LUNG DISORDER
     Dosage: 2 DF (90 MG), EVERY 4 HRS AS NEEDED
     Route: 055
     Dates: start: 20110323
  14. TAMSULOSIN [Concomitant]
     Dosage: 0.4 MG, 1X/DAY 1/2 HR BEFORE A MEAL
     Route: 048
     Dates: start: 20110518
  15. VIAGRA [Suspect]
     Dosage: UNK
     Route: 048
     Dates: start: 20110411, end: 20110411
  16. COLCHICINE [Concomitant]
     Dosage: 0.6 MG, 2 TABLETS THEN 1 TABLET
     Route: 048
     Dates: start: 20110323

REACTIONS (14)
  - NERVE INJURY [None]
  - ILIAC ARTERY OCCLUSION [None]
  - NEUROGENIC BLADDER [None]
  - DYSURIA [None]
  - PAINFUL ERECTION [None]
  - EPICONDYLITIS [None]
  - PROSTATIC DISORDER [None]
  - ACCIDENTAL EXPOSURE [None]
  - ORGANIC ERECTILE DYSFUNCTION [None]
  - SLEEP DISORDER [None]
  - GROIN PAIN [None]
  - LIBIDO DECREASED [None]
  - DIABETIC NEUROPATHY [None]
  - ERECTION INCREASED [None]
